FAERS Safety Report 5589570-8 (Version None)
Quarter: 2007Q4

REPORT INFORMATION
  Report Type: 
  Country: None (occurrence: None)
  Receive Date: 20071210
  Receipt Date: 20070809
  Transmission Date: 20080405
  Serious: Yes (Death)
  Sender: FDA-Public Use
  Company Number: 510982

PATIENT
  Age: 46 Year
  Sex: Female

DRUGS (1)
  1. VALIUM [Suspect]
     Indication: ANXIETY
     Dosage: 650 MG E
     Dates: start: 20050615, end: 20070808

REACTIONS (1)
  - OVERDOSE [None]
